FAERS Safety Report 5349530-9 (Version None)
Quarter: 2007Q2

REPORT INFORMATION
  Report Type: 
  Country: None (occurrence: None)
  Receive Date: 20070607
  Receipt Date: 20070529
  Transmission Date: 20071010
  Serious: Yes (Death, Life-Threatening, Other)
  Sender: FDA-Public Use
  Company Number: GB-JNJFOC-20070506870

PATIENT
  Sex: Male
  Weight: 75 kg

DRUGS (7)
  1. INFLIXIMAB [Suspect]
     Indication: RHEUMATOID ARTHRITIS
     Route: 042
  2. METHOTREXATE SODIUM [Concomitant]
  3. PREDNISOLONE [Concomitant]
  4. FOLIC ACID [Concomitant]
  5. SOTALOL HYDROCHLORIDE [Concomitant]
  6. NABUMETONE [Concomitant]
  7. LANSOPRAZOLE [Concomitant]

REACTIONS (1)
  - RENAL NEOPLASM [None]
